FAERS Safety Report 17822803 (Version 3)
Quarter: 2021Q4

REPORT INFORMATION
  Report Type: Spontaneous
  Country: FR (occurrence: None)
  Receive Date: 20200526
  Receipt Date: 20211129
  Transmission Date: 20220303
  Serious: Yes (Other)
  Sender: FDA-Public Use
  Company Number: None

PATIENT
  Age: 73 Year
  Sex: Male
  Weight: 81 kg

DRUGS (11)
  1. METFORMIN [Suspect]
     Active Substance: METFORMIN HYDROCHLORIDE
     Indication: Type 2 diabetes mellitus
     Route: 048
  2. METFORMIN [Suspect]
     Active Substance: METFORMIN HYDROCHLORIDE
     Dosage: DOSE REDUCED
     Route: 048
  3. LERCANIDIPINE [Suspect]
     Active Substance: LERCANIDIPINE
     Indication: Hypertension
     Route: 048
  4. LERCANIDIPINE [Suspect]
     Active Substance: LERCANIDIPINE
     Dosage: DOSE WAS REDUCED
     Route: 048
  5. RAMIPRIL [Suspect]
     Active Substance: RAMIPRIL
     Indication: Hypertension
     Route: 048
  6. RAMIPRIL [Suspect]
     Active Substance: RAMIPRIL
     Dosage: DOSE REDUCED
     Route: 048
  7. SEMAGLUTIDE [Suspect]
     Active Substance: SEMAGLUTIDE
     Indication: Type 2 diabetes mellitus
     Route: 058
     Dates: end: 20200407
  8. KARDEGIC [Concomitant]
     Active Substance: ASPIRIN DL-LYSINE
     Indication: Product used for unknown indication
  9. NEBIVOLOL [Concomitant]
     Active Substance: NEBIVOLOL
     Indication: Product used for unknown indication
  10. ALFUZOSIN [Concomitant]
     Active Substance: ALFUZOSIN
     Indication: Product used for unknown indication
  11. FUROSEMIDE [Concomitant]
     Active Substance: FUROSEMIDE
     Indication: Product used for unknown indication

REACTIONS (1)
  - Vitamin B12 decreased [Recovered/Resolved]

NARRATIVE: CASE EVENT DATE: 20200328
